FAERS Safety Report 8225723-8 (Version None)
Quarter: 2012Q1

REPORT INFORMATION
  Report Type: 
  Country: None (occurrence: None)
  Receive Date: 20120319
  Receipt Date: 20120116
  Transmission Date: 20120608
  Serious: Yes (Death)
  Sender: FDA-Public Use
  Company Number: AE12-012-65

PATIENT
  Age: 44 Year
  Sex: Female

DRUGS (5)
  1. ACETAMINOPHEN AND HYDROCODONE BITARTRATE [Suspect]
     Indication: PRODUCT USED FOR UNKNOWN INDICATION
     Dosage: ORALLY+ INHALE
     Route: 048
  2. CLONIDINE [Suspect]
     Indication: PRODUCT USED FOR UNKNOWN INDICATION
     Dosage: ORALLY+INHALE
     Route: 048
  3. BUTALBITAL ACETAMINOPHEN AND CAFFEINE [Suspect]
     Dosage: ORALLY+INHA
  4. OXYCODONE HCL EXTENDED-RELEASE [Suspect]
  5. LITHIUM CARBONATE [Suspect]
     Indication: PRODUCT USED FOR UNKNOWN INDICATION
     Dosage: ORALLY+INHALE
     Route: 048

REACTIONS (1)
  - COMPLETED SUICIDE [None]
